FAERS Safety Report 5195494-0 (Version None)
Quarter: 2006Q4

REPORT INFORMATION
  Report Type: 
  Country: None (occurrence: None)
  Receive Date: 20061222
  Receipt Date: 20061222
  Transmission Date: 20070319
  Serious: No
  Sender: FDA-Public Use
  Company Number: None

PATIENT
  Age: 56 Year
  Sex: Female
  Weight: 70.3075 kg

DRUGS (1)
  1. EFFEXOR [Suspect]
     Indication: ASTHENIA
     Dosage: 1 PILL  EVERYDAY  PO
     Route: 048
     Dates: start: 19991001, end: 20051017

REACTIONS (23)
  - AGGRESSION [None]
  - AMNESIA [None]
  - ANGER [None]
  - BLOOD PRESSURE ABNORMAL [None]
  - CONFUSIONAL STATE [None]
  - DEPRESSION [None]
  - DRUG DEPENDENCE [None]
  - DRUG WITHDRAWAL SYNDROME [None]
  - DRY MOUTH [None]
  - FEAR [None]
  - HALLUCINATION, AUDITORY [None]
  - HUNGER [None]
  - HYPOTHYROIDISM [None]
  - ILL-DEFINED DISORDER [None]
  - MALAISE [None]
  - MENOPAUSE [None]
  - MENTAL DISORDER [None]
  - NERVOUS SYSTEM DISORDER [None]
  - PAIN [None]
  - PARAESTHESIA [None]
  - PARAESTHESIA ORAL [None]
  - PERSONALITY CHANGE [None]
  - SUICIDAL IDEATION [None]
